FAERS Safety Report 4350845-1 (Version None)
Quarter: 2004Q2

REPORT INFORMATION
  Report Type: 
  Country: None (occurrence: None)
  Receive Date: 20040427
  Receipt Date: 20040209
  Transmission Date: 20050107
  Serious: Yes (Hospitalization)
  Sender: FDA-Public Use
  Company Number: A02200400578

PATIENT
  Age: 32 Year
  Sex: Male

DRUGS (7)
  1. STILNOX - (ZOLPIDEM) - TABLET - 10 MG [Suspect]
     Indication: SLEEP DISORDER
     Dosage: 60 MG DAILY
     Route: 048
     Dates: start: 20030923, end: 20031029
  2. EFFEXOR [Concomitant]
  3. XANAX [Concomitant]
  4. VISCERALGINE (TIEMONIUM MESILATE) [Concomitant]
  5. NOCTRAN (CLORAZEPATE/ACEPROMAZINE/ACEPROMETAZINE) [Concomitant]
  6. TERCIAN (CYAMEMAZINE) [Concomitant]
  7. SUBUTEX [Concomitant]

REACTIONS (3)
  - DRUG ABUSER [None]
  - MEDICATION ERROR [None]
  - UNEXPECTED THERAPEUTIC DRUG EFFECT [None]
